FAERS Safety Report 11898887 (Version 1)
Quarter: 2016Q1

REPORT INFORMATION
  Report Type: Report from Study
  Country: US (occurrence: US)
  Receive Date: 20160108
  Receipt Date: 20160108
  Transmission Date: 20160526
  Serious: Yes (Hospitalization)
  Sender: FDA-Public Use
  Company Number: US-BIOGEN-2016BI00168390

PATIENT
  Sex: Male

DRUGS (1)
  1. TECFIDERA [Suspect]
     Active Substance: DIMETHYL FUMARATE
     Indication: MULTIPLE SCLEROSIS
     Dosage: MAINTAINENCE DOSE
     Route: 048
     Dates: start: 20150209

REACTIONS (7)
  - Nasal discomfort [Recovered/Resolved]
  - Ataxia [Unknown]
  - Back pain [Recovered/Resolved]
  - Rhinorrhoea [Recovered/Resolved]
  - Gait disturbance [Unknown]
  - Nasopharyngitis [Recovered/Resolved]
  - Faecaloma [Recovered/Resolved]
